FAERS Safety Report 4989483-6 (Version None)
Quarter: 2006Q2

REPORT INFORMATION
  Report Type: 
  Country: None (occurrence: None)
  Receive Date: 20060425
  Receipt Date: 20060410
  Transmission Date: 20061013
  Serious: No
  Sender: FDA-Public Use
  Company Number: 34039

PATIENT
  Age: 79 Year
  Sex: Male

DRUGS (6)
  1. MIOSTAT [Suspect]
     Indication: MIOSIS
     Dates: start: 20060208, end: 20060208
  2. MIOSTAT [Suspect]
     Indication: PROCEDURAL COMPLICATION
     Dates: start: 20060208, end: 20060208
  3. FELODIPINE [Concomitant]
  4. TERAZOSIN HCL [Concomitant]
  5. SIMVASTATIN [Concomitant]
  6. ASPIRIN [Concomitant]

REACTIONS (4)
  - ANTERIOR CHAMBER FIBRIN [None]
  - CORNEAL OEDEMA [None]
  - EYE INFLAMMATION [None]
  - POST PROCEDURAL COMPLICATION [None]
